FAERS Safety Report 24233176 (Version 1)
Quarter: 2024Q3

REPORT INFORMATION
  Report Type: Spontaneous
  Country: CN (occurrence: CN)
  Receive Date: 20240821
  Receipt Date: 20240821
  Transmission Date: 20241017
  Serious: Yes (Hospitalization, Other)
  Sender: PFIZER
  Company Number: CN-PFIZER INC-PV202400107433

PATIENT
  Age: 33 Year
  Sex: Female

DRUGS (1)
  1. METHOTREXATE SODIUM [Suspect]
     Active Substance: METHOTREXATE SODIUM
     Indication: Ectopic pregnancy
     Dosage: 72 MG, 1X/DAY
     Route: 030
     Dates: start: 20240808, end: 20240811

REACTIONS (10)
  - Mouth ulceration [Unknown]
  - Gingival bleeding [Unknown]
  - Oropharyngeal pain [Unknown]
  - Pyrexia [Unknown]
  - Chills [Unknown]
  - Nasal obstruction [Unknown]
  - Rhinorrhoea [Unknown]
  - Swelling face [Unknown]
  - Pain in jaw [Unknown]
  - Off label use [Unknown]

NARRATIVE: CASE EVENT DATE: 20240808
